FAERS Safety Report 18373072 (Version 3)
Quarter: 2022Q1

REPORT INFORMATION
  Report Type: Spontaneous
  Country: DK (occurrence: DK)
  Receive Date: 20201012
  Receipt Date: 20220217
  Transmission Date: 20220424
  Serious: Yes (Hospitalization, Disabling)
  Sender: FDA-Public Use
  Company Number: None

PATIENT
  Age: 53 Year
  Sex: Female
  Weight: 80 kg

DRUGS (1)
  1. PROVERA [Suspect]
     Active Substance: MEDROXYPROGESTERONE ACETATE
     Indication: Heavy menstrual bleeding
     Dosage: 10 MG, 1X/DAY, THIS IS THE SECOND TREATMENT
     Route: 048
     Dates: start: 20200501, end: 20200510

REACTIONS (7)
  - Cerebral infarction [Recovered/Resolved]
  - Muscular weakness [Recovered/Resolved]
  - Hemiparesis [Recovered/Resolved]
  - Aphasia [Recovered/Resolved]
  - Cerebral thrombosis [Recovered/Resolved]
  - Speech disorder [Not Recovered/Not Resolved]
  - Coordination abnormal [Recovered/Resolved]

NARRATIVE: CASE EVENT DATE: 20200522
